FAERS Safety Report 9304010 (Version 1)
Quarter: 2013Q2

REPORT INFORMATION
  Report Type: Spontaneous
  Country: DE (occurrence: DE)
  Receive Date: 20130522
  Receipt Date: 20130522
  Transmission Date: 20140414
  Serious: Yes (Hospitalization)
  Sender: FDA-Public Use
  Company Number: GXKR2013DE001883

PATIENT
  Sex: Female
  Weight: 48 kg

DRUGS (4)
  1. RIBAVIRIN [Suspect]
     Indication: HEPATITIS C
     Route: 065
     Dates: start: 2011
  2. RIBAVIRIN [Suspect]
     Dosage: UNK
     Dates: start: 2012
  3. PEGASYS [Suspect]
     Indication: HEPATITIS C
     Dates: start: 2011
  4. PEGASYS [Suspect]
     Dates: start: 2012

REACTIONS (2)
  - Cardiac failure [Not Recovered/Not Resolved]
  - Cardiomyopathy [Not Recovered/Not Resolved]
